FAERS Safety Report 19245800 (Version 2)
Quarter: 2021Q2

REPORT INFORMATION
  Report Type: Report from Study
  Country: BE (occurrence: BE)
  Receive Date: 20210512
  Receipt Date: 20210608
  Transmission Date: 20210717
  Serious: Yes (Hospitalization, Other)
  Sender: FDA-Public Use
  Company Number: BE-ROCHE-2818847

PATIENT
  Age: 58 Year
  Sex: Male
  Weight: 101 kg

DRUGS (5)
  1. GLUCOPHAGE [Concomitant]
     Active Substance: METFORMIN HYDROCHLORIDE
  2. MONURIL [Concomitant]
     Active Substance: FOSFOMYCIN TROMETHAMINE
     Dates: start: 20201123
  3. ATEZOLIZUMAB. [Suspect]
     Active Substance: ATEZOLIZUMAB
     Indication: RECTAL CANCER
     Dosage: RECEIVED SUBSEQUENT DOSES OF ATEZOLIZUMAB ON 02/NOV/2020, 23/NOV/2020, 14/DEC/2020?DATE OF LAST DOSE
     Route: 042
     Dates: start: 20201013
  4. ATORVASTATINE [Concomitant]
     Active Substance: ATORVASTATIN
  5. 5?FU [Suspect]
     Active Substance: FLUOROURACIL
     Indication: RECTAL CANCER
     Dosage: RECEIVED SUBSEQUENT DOSES OF 5?FU ON 05/OCT/2020, 13/OCT/2020, 19/OCT/2020, 26/OCT/2020?DATE OF LAST
     Route: 065
     Dates: start: 20200928

REACTIONS (5)
  - Nephrolithiasis [Recovered/Resolved]
  - Pyelonephritis [Recovered/Resolved]
  - Septic shock [Recovered/Resolved]
  - Herpes zoster infection neurological [Recovered/Resolved]
  - Escherichia test positive [Unknown]

NARRATIVE: CASE EVENT DATE: 20210129
